FAERS Safety Report 8292097-6 (Version None)
Quarter: 2012Q2

REPORT INFORMATION
  Report Type: 
  Country: None (occurrence: None)
  Receive Date: 20120417
  Receipt Date: 20120104
  Transmission Date: 20120825
  Serious: No
  Sender: FDA-Public Use
  Company Number: US-ASTRAZENECA-2012SE00955

PATIENT
  Age: 43 Year
  Sex: Male

DRUGS (2)
  1. NEXIUM [Suspect]
     Dosage: 4 CAPSULES PER DAY
     Route: 048
  2. OMEPRAZOLE [Suspect]
     Route: 048

REACTIONS (4)
  - INCORRECT DOSE ADMINISTERED [None]
  - WEIGHT DECREASED [None]
  - DRUG INEFFECTIVE [None]
  - DRUG EFFECT DECREASED [None]
